FAERS Safety Report 6934993-5 (Version None)
Quarter: 2010Q3

REPORT INFORMATION
  Report Type: 
  Country: None (occurrence: None)
  Receive Date: 20100822
  Receipt Date: 20100809
  Transmission Date: 20110219
  Serious: Yes (Hospitalization, Other)
  Sender: FDA-Public Use
  Company Number: PHFR2010GB01369

PATIENT
  Sex: Female

DRUGS (2)
  1. CLOZARIL [Suspect]
     Indication: SCHIZOPHRENIA
     Dosage: UNK
     Dates: start: 20030313
  2. CLOZARIL [Suspect]
     Route: 048
     Dates: start: 20030313, end: 19000101

REACTIONS (7)
  - BARIATRIC GASTRIC BALLOON INSERTION [None]
  - GASTRIC BYPASS [None]
  - INTESTINAL STENOSIS [None]
  - OBESITY [None]
  - POST PROCEDURAL COMPLICATION [None]
  - SLEEP APNOEA SYNDROME [None]
  - VOMITING [None]
